FAERS Safety Report 5829350-9 (Version None)
Quarter: 2008Q2

REPORT INFORMATION
  Report Type: 
  Country: None (occurrence: None)
  Receive Date: 20080601
  Receipt Date: 20080215
  Transmission Date: 20081010
  Serious: No
  Sender: FDA-Public Use
  Company Number: US200802004005

PATIENT
  Age: 64 Year
  Sex: Female
  Weight: 101.1 kg

DRUGS (16)
  1. BYETTA [Suspect]
     Indication: INSULIN-REQUIRING TYPE 2 DIABETES MELLITUS
     Dosage: 5 UG, 2/D, SUBCUTANEOUS; 10 UG, 2/D, SUBCUTANEOUS
     Route: 058
     Dates: start: 20060401, end: 20060501
  2. BYETTA [Suspect]
     Indication: INSULIN-REQUIRING TYPE 2 DIABETES MELLITUS
     Dosage: 5 UG, 2/D, SUBCUTANEOUS; 10 UG, 2/D, SUBCUTANEOUS
     Route: 058
     Dates: start: 20060501
  3. EXENATIDE 5MCG PEN, DISPOSABLE DEVICE (EXENATIDE PEN (5MCG)) PEN,DISPO [Concomitant]
  4. EXENATIDE 10MCG PEN, DISPOSABLE DEVICE (EXENATIDE PEN (10MCG)) PEN,DIS [Concomitant]
  5. METFORMIN HCL [Concomitant]
  6. LANTUS [Concomitant]
  7. GLIPIZIDE [Concomitant]
  8. HUMALOG [Concomitant]
  9. CYMBALTA [Concomitant]
  10. DICLOFENAC SODIUM [Concomitant]
  11. ASPIRIN [Concomitant]
  12. ZANTAC [Concomitant]
  13. ZOCOR [Concomitant]
  14. HYZAAR [Concomitant]
  15. TOPROL-XL [Concomitant]
  16. PLAVIX [Concomitant]

REACTIONS (5)
  - ANXIETY [None]
  - BLOOD GLUCOSE INCREASED [None]
  - NAUSEA [None]
  - STRESS [None]
  - WEIGHT DECREASED [None]
